FAERS Safety Report 7513657-3 (Version None)
Quarter: 2011Q2

REPORT INFORMATION
  Report Type: 
  Country: None (occurrence: None)
  Receive Date: 20110531
  Receipt Date: 20110318
  Transmission Date: 20111010
  Serious: Yes (Other)
  Sender: FDA-Public Use
  Company Number: US-BAYER-200829340NA

PATIENT
  Sex: Female
  Weight: 132 kg

DRUGS (52)
  1. OPTIMARK [Suspect]
     Indication: NUCLEAR MAGNETIC RESONANCE IMAGING
  2. ADVAIR DISKUS 100/50 [Concomitant]
  3. ALTACE [Concomitant]
  4. PREDNISONE [Concomitant]
  5. MAGNEVIST [Suspect]
     Indication: NUCLEAR MAGNETIC RESONANCE IMAGING
     Dosage: UNK
     Dates: start: 20040823, end: 20040823
  6. LASIX [Concomitant]
  7. VAGIFEM [Concomitant]
  8. MEXILETINE HYDROCHLORIDE [Concomitant]
  9. AMBIEN [Concomitant]
  10. LEVOTHYROXINE SODIUM [Concomitant]
  11. NOVOLOG [Concomitant]
  12. IMITREX [Concomitant]
  13. METOPROLOL TARTRATE [Concomitant]
  14. ONE-A-DAY [MINERALS NOS,VITAMINS NOS] [Concomitant]
  15. AMITRIPTYLINE HCL [Concomitant]
  16. SPIRONOLACTONE [Concomitant]
  17. NEURONTIN [Concomitant]
  18. PROTONIX [Concomitant]
  19. PHENERGAN HCL [Concomitant]
  20. HYDROCODONE BITARTRATE [Concomitant]
  21. OMNISCAN [Suspect]
     Indication: NUCLEAR MAGNETIC RESONANCE IMAGING
     Dosage: UNK
     Dates: start: 20000816, end: 20000816
  22. MULTIHANCE [Suspect]
     Indication: NUCLEAR MAGNETIC RESONANCE IMAGING
  23. ELAVIL [Concomitant]
  24. VICODIN [Concomitant]
  25. LIDODERM [Concomitant]
  26. TEMAZEPAM [Concomitant]
  27. COUMADIN [Concomitant]
  28. OXYCONTIN [Concomitant]
  29. IMITREX [Concomitant]
  30. SINGULAIR [Concomitant]
  31. METOPROLOL TARTRATE [Concomitant]
  32. AMIODARONE HCL [Concomitant]
  33. NOVOLIN [INSULIN] [Concomitant]
  34. EFFEXOR XR [Concomitant]
  35. LASIX [Concomitant]
  36. DIGOXIN [Concomitant]
  37. HYZAAR [Concomitant]
  38. PROHANCE [Suspect]
     Indication: NUCLEAR MAGNETIC RESONANCE IMAGING
  39. NEURONTIN [Concomitant]
  40. SEROQUEL [Concomitant]
  41. MAGNESIUM OXIDE [Concomitant]
  42. VITAMINS [Concomitant]
  43. XOPENEX [Concomitant]
  44. ALDACTONE [POTASSIUM CANRENOATE] [Concomitant]
  45. POTASSIUM CHLORIDE [Concomitant]
  46. METOLAZONE [Concomitant]
  47. PLAVIX [Concomitant]
  48. PROTONIX [Concomitant]
  49. SINGULAIR [Concomitant]
  50. ACETAMINOPHEN [Concomitant]
  51. SILDENAFIL CITRATE [Concomitant]
  52. LIPITOR [Concomitant]

REACTIONS (8)
  - PAIN [None]
  - NEPHROGENIC SYSTEMIC FIBROSIS [None]
  - PARAESTHESIA [None]
  - EMOTIONAL DISTRESS [None]
  - ANXIETY [None]
  - MOBILITY DECREASED [None]
  - GENERAL PHYSICAL HEALTH DETERIORATION [None]
  - INJURY [None]
